FAERS Safety Report 4563382-6 (Version None)
Quarter: 2005Q1

REPORT INFORMATION
  Report Type: 
  Country: None (occurrence: None)
  Receive Date: 20050128
  Receipt Date: 20040319
  Transmission Date: 20050727
  Serious: No
  Sender: FDA-Public Use
  Company Number: US-GLAXOSMITHKLINE-A0503531A

PATIENT
  Age: 56 Year
  Sex: Female

DRUGS (7)
  1. WELLBUTRIN [Suspect]
     Indication: DEPRESSION
     Dosage: 75MG TWICE PER DAY
     Route: 048
     Dates: start: 20040313
  2. KLONOPIN [Concomitant]
  3. PROMETRIUM [Concomitant]
  4. SYNTHROID [Concomitant]
  5. VOLTAREN [Concomitant]
  6. ALLEGRA [Concomitant]
  7. PREVACID [Concomitant]

REACTIONS (1)
  - INSOMNIA [None]
